FAERS Safety Report 8613956-8 (Version None)
Quarter: 2012Q3

REPORT INFORMATION
  Report Type: 
  Country: None (occurrence: None)
  Receive Date: 20120823
  Receipt Date: 20120820
  Transmission Date: 20120928
  Serious: No
  Sender: FDA-Public Use
  Company Number: US-PFIZER INC-2012203853

PATIENT
  Age: 82 Year
  Sex: Female
  Weight: 58 kg

DRUGS (10)
  1. PRISTIQ [Suspect]
     Indication: DEPRESSION
     Dosage: 25 MG, 1X/DAY
     Route: 048
     Dates: start: 20120817, end: 20120819
  2. PRISTIQ [Suspect]
     Dosage: 25 MG, ALTERNATE DAY
     Route: 048
     Dates: start: 20120819
  3. ZOCOR [Concomitant]
     Indication: CARDIAC DISORDER
     Dosage: UNK
  4. COREG [Concomitant]
     Indication: HYPERTENSION
     Dosage: UNK
  5. ARIMIDEX [Concomitant]
     Indication: BREAST CANCER
     Dosage: UNK
  6. ACETYLSALICYLIC ACID [Concomitant]
     Dosage: 81 MG, UNK
  7. AMIODARONE [Concomitant]
     Dosage: UNK
  8. PRADAXA [Concomitant]
     Dosage: UNK
  9. MACRODANTIN [Concomitant]
     Indication: NEUROGENIC BLADDER
     Dosage: UNK, AS NEEDED
  10. LASIX [Concomitant]
     Dosage: UNK

REACTIONS (3)
  - FATIGUE [None]
  - DIZZINESS [None]
  - DRUG INTOLERANCE [None]
